FAERS Safety Report 10756859 (Version 1)
Quarter: 2015Q1

REPORT INFORMATION
  Report Type: Spontaneous
  Country: JP (occurrence: JP)
  Receive Date: 20150203
  Receipt Date: 20150203
  Transmission Date: 20150721
  Serious: Yes (Other)
  Sender: FDA-Public Use
  Company Number: PHHY2015JP010437

PATIENT
  Age: 53 Year
  Sex: Male
  Weight: 61.5 kg

DRUGS (2)
  1. CARBOPLATIN. [Suspect]
     Active Substance: CARBOPLATIN
     Indication: THYMOMA MALIGNANT
     Dosage: 300 MG/M2, QD (ON DAY 1 EVERY THREE WEEKS)
     Route: 065
  2. PACLITAXEL. [Suspect]
     Active Substance: PACLITAXEL
     Indication: THYMOMA MALIGNANT
     Dosage: 200 MG/M2, QD (ON DAY 1 EVERY THREE WEEKS)
     Route: 065

REACTIONS (1)
  - Neutropenia [Recovered/Resolved]
